FAERS Safety Report 8589886-7 (Version None)
Quarter: 2012Q3

REPORT INFORMATION
  Report Type: 
  Country: None (occurrence: None)
  Receive Date: 20120813
  Receipt Date: 20120807
  Transmission Date: 20120928
  Serious: Yes (Other)
  Sender: FDA-Public Use
  Company Number: PHEH2012US014553

PATIENT
  Sex: Female

DRUGS (2)
  1. AMANTADINE HCL [Concomitant]
     Dosage: 200 MG, QD
     Route: 048
  2. GILENYA [Suspect]
     Indication: MULTIPLE SCLEROSIS
     Dosage: 0.5 MG, QD
     Route: 048
     Dates: start: 20120719

REACTIONS (3)
  - HOT FLUSH [None]
  - SYNCOPE [None]
  - BRADYCARDIA [None]
